FAERS Safety Report 5278640-X (Version None)
Quarter: 2007Q1

REPORT INFORMATION
  Report Type: 
  Country: None (occurrence: None)
  Receive Date: 20070328
  Receipt Date: 20070309
  Transmission Date: 20070707
  Serious: Yes (Death, Hospitalization)
  Sender: FDA-Public Use
  Company Number: GB-JNJFOC-20060705927

PATIENT
  Age: 79 Year
  Sex: Female

DRUGS (5)
  1. TRAMADOL HCL [Suspect]
     Indication: SCIATICA
     Route: 065
  2. AMITRIPTYLINE HCL [Interacting]
     Indication: DEPRESSION
     Route: 048
  3. CO-PROXAMOL [Concomitant]
     Indication: BACK PAIN
     Route: 065
  4. MORPHINE [Concomitant]
     Indication: BACK PAIN
     Route: 065
  5. ROFECOXIB [Concomitant]
     Indication: BACK PAIN
     Route: 065

REACTIONS (4)
  - BRADYCARDIA [None]
  - DRUG INTERACTION [None]
  - METABOLIC ACIDOSIS [None]
  - SEROTONIN SYNDROME [None]
